FAERS Safety Report 8326377-2 (Version None)
Quarter: 2012Q2

REPORT INFORMATION
  Report Type: 
  Country: None (occurrence: None)
  Receive Date: 20120501
  Receipt Date: 20090625
  Transmission Date: 20120825
  Serious: No
  Sender: FDA-Public Use
  Company Number: US-TEVA-2009007698

PATIENT
  Sex: Male
  Weight: 84.898 kg

DRUGS (3)
  1. MELATONIN [Concomitant]
     Indication: SLEEP DISORDER
     Dates: start: 20060101
  2. NUVIGIL [Suspect]
     Indication: DEPRESSED LEVEL OF CONSCIOUSNESS
     Dosage: 150 MILLIGRAM;
     Route: 048
     Dates: start: 20090601
  3. SEROQUEL [Concomitant]
     Indication: SLEEP DISORDER
     Dates: start: 20060101

REACTIONS (1)
  - INITIAL INSOMNIA [None]
